FAERS Safety Report 14992961 (Version 3)
Quarter: 2018Q3

REPORT INFORMATION
  Report Type: Spontaneous
  Country: US (occurrence: US)
  Receive Date: 20180610
  Receipt Date: 20180706
  Transmission Date: 20181010
  Serious: No
  Sender: FDA-Public Use
  Company Number: US-JNJFOC-20180531925

PATIENT
  Sex: Male

DRUGS (1)
  1. INVEGA TRINZA [Suspect]
     Active Substance: PALIPERIDONE PALMITATE
     Indication: PRODUCT USED FOR UNKNOWN INDICATION
     Dosage: EVERY 10? 12 WEEKS
     Route: 030
     Dates: start: 20170711

REACTIONS (3)
  - Drug dose omission [Unknown]
  - Product packaging issue [Unknown]
  - Product quality issue [Unknown]
